FAERS Safety Report 15631083 (Version 1)
Quarter: 2018Q4

REPORT INFORMATION
  Report Type: Report from Study
  Country: US (occurrence: US)
  Receive Date: 20181119
  Receipt Date: 20181119
  Transmission Date: 20190205
  Serious: Yes (Other)
  Sender: FDA-Public Use
  Company Number: US-ROCHE-2215311

PATIENT

DRUGS (2)
  1. RITUXIMAB. [Suspect]
     Active Substance: RITUXIMAB
     Indication: NON-HODGKIN^S LYMPHOMA
     Dosage: WEEKLY IN CYCLE 1 STARTING IN WEEK 2, AND THEN MONTHLY IN CYCLES 2 THROUGH 6.
     Route: 042
  2. HU5F9-G4 [Suspect]
     Active Substance: INVESTIGATIONAL PRODUCT
     Indication: NON-HODGKIN^S LYMPHOMA
     Dosage: 1 MG PER KILOGRAM FOLLOWED 1 WEEK LATER BY THE RECEIPT OF ESCALATING MAINTENANCE DOSES OF 10, 20, OR
     Route: 042

REACTIONS (15)
  - Neutropenia [Unknown]
  - Chills [Unknown]
  - Hypercalcaemia [Unknown]
  - Thrombocytopenia [Unknown]
  - Insomnia [Unknown]
  - Dyspnoea [Unknown]
  - Pyrexia [Unknown]
  - Lactic acidosis [Unknown]
  - Muscular weakness [Unknown]
  - Infection [Unknown]
  - Anaemia [Unknown]
  - Neutrophil count decreased [Unknown]
  - Headache [Unknown]
  - Retroperitoneal mass [Unknown]
  - Infusion related reaction [Unknown]
